FAERS Safety Report 11538232 (Version 2)
Quarter: 2015Q4

REPORT INFORMATION
  Report Type: Report from Study
  Country: CN (occurrence: CN)
  Receive Date: 20150922
  Receipt Date: 20151009
  Transmission Date: 20160304
  Serious: Yes (Hospitalization, Other)
  Sender: FDA-Public Use
  Company Number: CN-BRISTOL-MYERS SQUIBB COMPANY-BMS-2015-061871

PATIENT
  Age: 60 Year
  Sex: Male
  Weight: 72 kg

DRUGS (2)
  1. METFORMIN HYDROCHLORIDE. [Suspect]
     Active Substance: METFORMIN HYDROCHLORIDE
     Indication: TYPE 2 DIABETES MELLITUS
     Dosage: 500 MG, QD
     Route: 048
     Dates: start: 20150610
  2. METFORMIN HYDROCHLORIDE. [Suspect]
     Active Substance: METFORMIN HYDROCHLORIDE
     Dosage: 2000 MG, QD
     Route: 048
     Dates: end: 20150826

REACTIONS (2)
  - Brain neoplasm [Recovered/Resolved with Sequelae]
  - Brain tumour operation [Unknown]

NARRATIVE: CASE EVENT DATE: 20150826
